FAERS Safety Report 4610192-7 (Version None)
Quarter: 2005Q1

REPORT INFORMATION
  Report Type: 
  Country: None (occurrence: None)
  Receive Date: 20050316
  Receipt Date: 20050307
  Transmission Date: 20050727
  Serious: Yes (Other)
  Sender: FDA-Public Use
  Company Number: PHRM2005FR01012

PATIENT
  Age: 24 Year
  Sex: Female

DRUGS (1)
  1. ZOMETA [Suspect]
     Indication: MALIGNANT HISTIOCYTOSIS
     Route: 042

REACTIONS (1)
  - MOUTH ULCERATION [None]
